FAERS Safety Report 19287036 (Version 1)
Quarter: 2021Q2

REPORT INFORMATION
  Report Type: Spontaneous
  Country: GB (occurrence: GB)
  Receive Date: 20210521
  Receipt Date: 20210521
  Transmission Date: 20210717
  Serious: Yes (Life-Threatening)
  Sender: FDA-Public Use
  Company Number: GB-BAXTER-2021BAX011396

PATIENT
  Age: 17 Year
  Sex: Male

DRUGS (8)
  1. ADRENALINE [Suspect]
     Active Substance: EPINEPHRINE
     Indication: ANAPHYLACTIC REACTION
     Dosage: 0.1 UG/KG/MIN AT 40 MINUTES AFTER ONSET, A PERIPHERAL ADRENALINE INFUSION OF 0.1 MCG/KG/MIN
     Route: 042
  2. EMERADE [Suspect]
     Active Substance: EPINEPHRINE BITARTRATE
     Dosage: 4 DOSES OF IM ADRENALINE (AUTO?INJECTOR) WERE ADMINISTERED OVER 20 MINUTES, ALTERNATING LIMBS FOR IN
     Route: 030
  3. HYDROCORTISONE. [Suspect]
     Active Substance: HYDROCORTISONE
     Indication: ANAPHYLACTIC REACTION
     Route: 042
  4. SODIUM CHLORIDE INTRAVENOUS INFUSION BP 0.9% W/V [Suspect]
     Active Substance: SODIUM CHLORIDE
     Indication: ANAPHYLACTIC REACTION
     Route: 042
  5. SODIUM CHLORIDE INTRAVENOUS INFUSION BP 0.9% W/V [Suspect]
     Active Substance: SODIUM CHLORIDE
     Indication: MEDICATION DILUTION
  6. EMERADE [Suspect]
     Active Substance: EPINEPHRINE BITARTRATE
     Indication: ANAPHYLACTIC REACTION
     Dosage: 4 DOSES WERE ADMINISTERED OVER 20 MINUTES, ALTERNATING LIMBS FOR INJECTION. AUTO?INJECTOR
     Route: 030
  7. CHLORPHENAMINE [Suspect]
     Active Substance: CHLORPHENIRAMINE MALEATE
     Indication: ANAPHYLACTIC REACTION
     Route: 042
  8. SALBUTAMOL [Suspect]
     Active Substance: ALBUTEROL
     Indication: ANAPHYLACTIC REACTION
     Dosage: NEBULISED SALBUTAMOL
     Route: 055

REACTIONS (1)
  - Drug ineffective [Recovered/Resolved]
